FAERS Safety Report 9785408 (Version 1)
Quarter: 2013Q4

REPORT INFORMATION
  Report Type: Spontaneous
  Country: GB (occurrence: GB)
  Receive Date: 20131227
  Receipt Date: 20131227
  Transmission Date: 20140711
  Serious: Yes (Disabling)
  Sender: FDA-Public Use
  Company Number: GB-ALLERGAN-1320011US

PATIENT
  Age: 93 Year
  Sex: Male
  Weight: 60 kg

DRUGS (9)
  1. ALPHAGAN 0.2% W/V (2 MG/ML) EYE DROPS SOLUTION [Suspect]
     Indication: PRODUCT USED FOR UNKNOWN INDICATION
     Dosage: UNK
     Dates: start: 20131113, end: 20131211
  2. ASPIRIN [Concomitant]
     Dosage: UNK
     Dates: start: 20130903, end: 20131126
  3. BENDROFLUMETHIAZIDE [Concomitant]
     Dosage: UNK
     Dates: start: 20130903, end: 20131126
  4. DORZOLAMIDE HYDROCHLORIDE [Concomitant]
     Dosage: UNK
     Dates: start: 20130903, end: 20131126
  5. HYLO-FORTE [Concomitant]
     Dosage: UNK
     Dates: start: 20131113, end: 20131211
  6. HYPROMELLOSE [Concomitant]
     Dosage: UNK
     Dates: start: 20130903, end: 20131126
  7. LACRI-LUBE [Concomitant]
     Dosage: UNK
     Dates: start: 20131113
  8. OMEPRAZOLE [Concomitant]
     Dosage: UNK
     Dates: start: 20130903, end: 20131126
  9. TILDIEM [Concomitant]
     Dosage: UNK
     Dates: start: 20130903, end: 20131126

REACTIONS (1)
  - Oedema peripheral [Recovered/Resolved]
